FAERS Safety Report 5413484-7 (Version None)
Quarter: 2007Q3

REPORT INFORMATION
  Report Type: 
  Country: None (occurrence: None)
  Receive Date: 20070814
  Receipt Date: 20070806
  Transmission Date: 20080115
  Serious: Yes (Death, Hospitalization, Other)
  Sender: FDA-Public Use
  Company Number: AU-AMGEN-US231462

PATIENT
  Sex: Female
  Weight: 58 kg

DRUGS (9)
  1. ARANESP [Suspect]
     Indication: DIALYSIS
     Route: 058
     Dates: start: 20030609, end: 20031122
  2. ASPIRIN [Concomitant]
  3. TRANDOLAPRIL [Concomitant]
  4. RANITIDINE [Concomitant]
  5. CALTRATE [Concomitant]
  6. CALCITRIOL [Concomitant]
  7. CITALOPRAM [Concomitant]
  8. OXAZEPAM [Concomitant]
  9. DIGOXIN [Concomitant]

REACTIONS (10)
  - ANOREXIA [None]
  - DEMENTIA [None]
  - DIARRHOEA [None]
  - FALL [None]
  - HALLUCINATION [None]
  - HIP FRACTURE [None]
  - INTESTINAL ISCHAEMIA [None]
  - SHOCK [None]
  - SPLENIC INFARCTION [None]
  - WEIGHT DECREASED [None]
